FAERS Safety Report 6487144-8 (Version None)
Quarter: 2009Q4

REPORT INFORMATION
  Report Type: 
  Country: None (occurrence: None)
  Receive Date: 20091210
  Receipt Date: 20090809
  Transmission Date: 20100525
  Serious: No
  Sender: FDA-Public Use
  Company Number: US-AMGEN-KDL359466

PATIENT
  Sex: Male
  Weight: 68.1 kg

DRUGS (2)
  1. ENBREL [Suspect]
     Indication: PSORIASIS
     Route: 058
     Dates: start: 20090401, end: 20090801
  2. CYCLOSPORINE [Concomitant]
     Route: 048
     Dates: start: 20090722

REACTIONS (4)
  - INSOMNIA [None]
  - PSORIASIS [None]
  - RASH PAPULAR [None]
  - RASH PRURITIC [None]
